FAERS Safety Report 5945759-7 (Version None)
Quarter: 2008Q4

REPORT INFORMATION
  Report Type: 
  Country: None (occurrence: None)
  Receive Date: 20081106
  Receipt Date: 20081103
  Transmission Date: 20090506
  Serious: Yes (Death, Other)
  Sender: FDA-Public Use
  Company Number: 2008SP020089

PATIENT
  Age: 76 Year
  Sex: Female

DRUGS (6)
  1. TEMODAR [Suspect]
     Indication: GLIOBLASTOMA MULTIFORME
     Dosage: 75 MG/M2;PO
     Route: 048
  2. ZOLOFT [Concomitant]
  3. DECADRON [Concomitant]
  4. SYNTHROID [Concomitant]
  5. AMBIEN [Concomitant]
  6. NORVASC [Concomitant]

REACTIONS (5)
  - APLASIA [None]
  - ASPERGILLOMA [None]
  - BONE MARROW FAILURE [None]
  - NEUTROPENIA [None]
  - PANCYTOPENIA [None]
